FAERS Safety Report 6013921-3 (Version None)
Quarter: 2008Q4

REPORT INFORMATION
  Report Type: 
  Country: None (occurrence: None)
  Receive Date: 20081219
  Receipt Date: 20081210
  Transmission Date: 20090506
  Serious: Yes (Hospitalization)
  Sender: FDA-Public Use
  Company Number: JP-JNJFOC-20081103315

PATIENT
  Sex: Female
  Weight: 49 kg

DRUGS (15)
  1. REMICADE [Suspect]
     Dosage: 4 DOSES TOTAL ADMINISTERED
     Route: 042
  2. REMICADE [Suspect]
     Dosage: 2 INFUSIONS ON UNKNOWN DATES
     Route: 042
  3. REMICADE [Suspect]
     Indication: RHEUMATOID ARTHRITIS
     Dosage: INFUSION 1-3 ON UNSPECIFIED DATES
     Route: 042
  4. RHEUMATREX [Suspect]
     Route: 048
  5. RHEUMATREX [Suspect]
     Route: 048
  6. RHEUMATREX [Suspect]
     Indication: RHEUMATOID ARTHRITIS
     Route: 048
  7. PROGRAF [Suspect]
     Route: 048
  8. PROGRAF [Suspect]
     Indication: RHEUMATOID ARTHRITIS
     Route: 048
  9. PREDONINE [Suspect]
     Indication: RHEUMATOID ARTHRITIS
     Route: 048
  10. PREDNISOLONE [Suspect]
     Indication: RHEUMATOID ARTHRITIS
     Route: 048
  11. THYRADIN [Concomitant]
     Indication: THYROIDITIS CHRONIC
     Dosage: DOSE INDICATED AS ^50 RG^
     Route: 048
  12. MOBIC [Concomitant]
     Indication: RHEUMATOID ARTHRITIS
     Route: 048
  13. CYTOTEC [Concomitant]
     Indication: PROPHYLAXIS AGAINST GASTROINTESTINAL ULCER
     Route: 048
  14. FOLIAMIN [Concomitant]
     Indication: PROPHYLAXIS
     Route: 048
  15. ISCOTIN [Concomitant]
     Indication: ANTIBIOTIC PROPHYLAXIS
     Route: 048

REACTIONS (1)
  - BREAST CANCER [None]
